FAERS Safety Report 18809838 (Version 2)
Quarter: 2021Q1

REPORT INFORMATION
  Report Type: Report from Study
  Country: US (occurrence: US)
  Receive Date: 20210129
  Receipt Date: 20210324
  Transmission Date: 20210419
  Serious: No
  Sender: FDA-Public Use
  Company Number: US-GLAXOSMITHKLINE-US2021AMR015082

PATIENT
  Sex: Female

DRUGS (1)
  1. BELANTAMAB MAFODOTIN. [Suspect]
     Active Substance: BELANTAMAB MAFODOTIN
     Indication: PRODUCT USED FOR UNKNOWN INDICATION
     Dosage: 220 MG
     Dates: start: 20201229

REACTIONS (7)
  - Night blindness [Unknown]
  - Photophobia [Unknown]
  - Ocular toxicity [Unknown]
  - Keratopathy [Unknown]
  - Visual acuity reduced [Unknown]
  - Dry eye [Unknown]
  - Foreign body sensation in eyes [Unknown]
